FAERS Safety Report 6202959-9 (Version None)
Quarter: 2009Q2

REPORT INFORMATION
  Report Type: 
  Country: None (occurrence: None)
  Receive Date: 20090519
  Receipt Date: 20090409
  Transmission Date: 20091009
  Serious: Yes (Life-Threatening, Hospitalization, Other)
  Sender: FDA-Public Use
  Company Number: 2009AP001355

PATIENT
  Age: 16 Year
  Sex: Female

DRUGS (1)
  1. FLUOXETINE HCL [Suspect]
     Dosage: 10 MG;QD ; 20 MG;QD ; 10 MG;QD ; 20 MG;QD

REACTIONS (8)
  - ABNORMAL DREAMS [None]
  - BIPOLAR DISORDER [None]
  - FEELINGS OF WORTHLESSNESS [None]
  - HEAD BANGING [None]
  - INTENTIONAL SELF-INJURY [None]
  - MANIA [None]
  - SUICIDE ATTEMPT [None]
  - WEIGHT INCREASED [None]
